FAERS Safety Report 9156770 (Version 1)
Quarter: 2013Q1

REPORT INFORMATION
  Report Type: Spontaneous
  Country: GB (occurrence: None)
  Receive Date: 20130211
  Receipt Date: 20130211
  Transmission Date: 20140127
  Serious: Yes (Hospitalization)
  Sender: FDA-Public Use
  Company Number: VAL_01300_2013

PATIENT
  Age: 32 Year
  Sex: Male

DRUGS (3)
  1. CARBAMAZEPINE (CARBAMAZEPINE) CHEWABLE TABLET [Suspect]
     Indication: PRODUCT USED FOR UNKNOWN INDICATION
     Dosage: (44.8 G, ESTIMATED 631 MG.KG [NOT THE PRESCRIBED DOSE])?(UNKNOWN UNTIL CONTINUING)
  2. CLONAZEPAM [Suspect]
     Indication: PRODUCT USED FOR UNKNOWN INDICATION
     Dosage: (3.5 MG [NOT THE PRESCRIBED DOSE])?(UNKNOWN UNTIL NOT CONTINUING)
  3. CHLORPROMAZINE [Suspect]
     Indication: PRODUCT USED FOR UNKNOWN INDICATION
     Dosage: (300 MG [NOT THE PRESCRIBED DOSED])?(UNKNOWN UNTIL NOT CONTINUING)

REACTIONS (10)
  - Coma scale abnormal [None]
  - Agitation [None]
  - Overdose [None]
  - Respiratory failure [None]
  - Hypotension [None]
  - Acute respiratory distress syndrome [None]
  - Electrocardiogram QT prolonged [None]
  - Continuous haemodiafiltration [None]
  - Neurological decompensation [None]
  - Blood creatine phosphokinase increased [None]
